FAERS Safety Report 10052222 (Version 1)
Quarter: 2014Q2

REPORT INFORMATION
  Report Type: Spontaneous
  Country: US (occurrence: US)
  Receive Date: 20140402
  Receipt Date: 20140402
  Transmission Date: 20141212
  Serious: Yes (Hospitalization)
  Sender: FDA-Public Use
  Company Number: US-BAYER-2014-048835

PATIENT
  Age: 20 Year
  Sex: Female
  Weight: 139.68 kg

DRUGS (2)
  1. YASMIN [Suspect]
  2. REGLAN [Concomitant]

REACTIONS (1)
  - Deep vein thrombosis [None]
